FAERS Safety Report 7635607-1 (Version None)
Quarter: 2011Q3

REPORT INFORMATION
  Report Type: 
  Country: None (occurrence: None)
  Receive Date: 20110726
  Receipt Date: 20110713
  Transmission Date: 20111222
  Serious: Yes (Hospitalization)
  Sender: FDA-Public Use
  Company Number: PHHY2011US63575

PATIENT

DRUGS (1)
  1. TASIGNA [Suspect]
     Dosage: 400 MG, BID
     Route: 048
     Dates: start: 20090801

REACTIONS (5)
  - HYPOTENSION [None]
  - HAEMOPTYSIS [None]
  - PNEUMONIA [None]
  - FEELING ABNORMAL [None]
  - BODY TEMPERATURE INCREASED [None]
